FAERS Safety Report 23990717 (Version 1)
Quarter: 2024Q2

REPORT INFORMATION
  Report Type: Spontaneous
  Country: CN (occurrence: CN)
  Receive Date: 20240619
  Receipt Date: 20240619
  Transmission Date: 20240716
  Serious: Yes (Life-Threatening)
  Sender: FDA-Public Use
  Company Number: CN-FreseniusKabi-FK202409385

PATIENT
  Age: 70 Year
  Sex: Male
  Weight: 55 kg

DRUGS (2)
  1. KABIVEN [Suspect]
     Active Substance: ALANINE\ARGININE\ASPARTIC ACID\CALCIUM CHLORIDE\DEXTROSE MONOHYDRATE\GLUTAMIC ACID\GLYCINE\HISTIDINE
     Indication: Neoplasm
     Dosage: FORM OF ADMIN-INJECTION?ROUTE OF ADMIN: INTRAVENOUS DRIP
     Dates: start: 20240611, end: 20240611
  2. VITAMINS [Concomitant]
     Active Substance: VITAMINS
     Indication: Neoplasm
     Route: 041
     Dates: start: 20240611, end: 20240611

REACTIONS (6)
  - Anaphylactic shock [Recovering/Resolving]
  - Chest discomfort [Recovering/Resolving]
  - Tachypnoea [Recovering/Resolving]
  - Seizure [Recovering/Resolving]
  - Chills [Recovering/Resolving]
  - Hyperhidrosis [Recovering/Resolving]

NARRATIVE: CASE EVENT DATE: 20240611
